FAERS Safety Report 4694592-5 (Version None)
Quarter: 2005Q2

REPORT INFORMATION
  Report Type: 
  Country: None (occurrence: None)
  Receive Date: 20050620
  Receipt Date: 20050613
  Transmission Date: 20051028
  Serious: Yes (Hospitalization)
  Sender: FDA-Public Use
  Company Number: US-BRISTOL-MYERS SQUIBB COMPANY-13001490

PATIENT
  Age: 55 Year
  Sex: Male
  Weight: 70 kg

DRUGS (7)
  1. CETUXIMAB [Suspect]
     Indication: NON-SMALL CELL LUNG CANCER
     Route: 042
     Dates: start: 20050422, end: 20050422
  2. CARBOPLATIN [Suspect]
     Indication: NON-SMALL CELL LUNG CANCER
     Route: 042
     Dates: start: 20050429, end: 20050429
  3. TAXOL [Suspect]
     Indication: NON-SMALL CELL LUNG CANCER
     Route: 042
     Dates: start: 20050429, end: 20050429
  4. COUMADIN [Concomitant]
  5. IRON [Concomitant]
  6. LOVENOX [Concomitant]
  7. MAGNESIUM [Concomitant]

REACTIONS (2)
  - PNEUMONIA [None]
  - SHOCK [None]
